FAERS Safety Report 17557591 (Version 1)
Quarter: 2020Q1

REPORT INFORMATION
  Report Type: Other
  Country: US (occurrence: US)
  Receive Date: 20200318
  Receipt Date: 20200318
  Transmission Date: 20200409
  Serious: Yes (Other)
  Sender: FDA-Public Use
  Company Number: US-AMAG PHARMACEUTICALS, INC.-AMAG202000954

PATIENT
  Age: 33 Year
  Sex: Female

DRUGS (2)
  1. MAKENA [Suspect]
     Active Substance: HYDROXYPROGESTERONE CAPROATE
     Indication: PREMATURE DELIVERY
     Route: 058
     Dates: end: 20200226
  2. MAKENA [Suspect]
     Active Substance: HYDROXYPROGESTERONE CAPROATE
     Indication: PREMATURE DELIVERY

REACTIONS (7)
  - Nausea [Unknown]
  - Anaphylactic shock [Unknown]
  - Weight increased [Unknown]
  - Vertigo [Unknown]
  - Rash [Unknown]
  - Fatigue [Unknown]
  - Epistaxis [Unknown]

NARRATIVE: CASE EVENT DATE: 20200120
